FAERS Safety Report 6048671-0 (Version None)
Quarter: 2009Q1

REPORT INFORMATION
  Report Type: 
  Country: None (occurrence: None)
  Receive Date: 20090123
  Receipt Date: 20090120
  Transmission Date: 20090719
  Serious: Yes (Life-Threatening)
  Sender: FDA-Public Use
  Company Number: FR-ASTRAZENECA-2009CG00234

PATIENT
  Age: 27749 Day
  Sex: Female

DRUGS (10)
  1. ATACAND [Suspect]
     Route: 048
     Dates: end: 20080629
  2. TAHOR [Suspect]
     Route: 048
     Dates: end: 20080629
  3. SOLUPRED [Suspect]
     Route: 048
     Dates: end: 20080629
  4. ADANCOR [Suspect]
     Route: 048
     Dates: end: 20080629
  5. DOLIPRANE [Suspect]
     Route: 048
     Dates: end: 20080629
  6. SINTROM [Interacting]
     Dosage: 0.25 DF ON EVEN DAY, 0.50 DF ON UNEVEN DAY
     Route: 048
     Dates: start: 19940101, end: 20080629
  7. MICONAZOLE NITRATE [Interacting]
     Dates: start: 20080614, end: 20080629
  8. PROPRANOLOL [Concomitant]
  9. HEMIGOXINE [Concomitant]
  10. LEXOMIL [Concomitant]

REACTIONS (2)
  - ANAEMIA [None]
  - HAEMATOMA [None]
